FAERS Safety Report 6254926-7 (Version None)
Quarter: 2009Q3

REPORT INFORMATION
  Report Type: 
  Country: None (occurrence: None)
  Receive Date: 20090702
  Receipt Date: 20090105
  Transmission Date: 20100115
  Serious: No
  Sender: FDA-Public Use
  Company Number: A0760002A

PATIENT
  Age: 25 Year
  Sex: Female
  Weight: 64.5 kg

DRUGS (3)
  1. PARNATE [Suspect]
     Indication: MAJOR DEPRESSION
     Dosage: 10MG THREE TIMES PER DAY
     Route: 048
     Dates: start: 20080820, end: 20081001
  2. RISPERDAL [Concomitant]
  3. HYDROXYZINE [Concomitant]

REACTIONS (4)
  - DEPRESSION [None]
  - FEELING ABNORMAL [None]
  - INSOMNIA [None]
  - PSYCHOMOTOR HYPERACTIVITY [None]
